FAERS Safety Report 9801298 (Version 1)
Quarter: 2014Q1

REPORT INFORMATION
  Report Type: Spontaneous
  Country: US (occurrence: US)
  Receive Date: 20140107
  Receipt Date: 20140107
  Transmission Date: 20141002
  Serious: No
  Sender: FDA-Public Use
  Company Number: US-GLAXOSMITHKLINE-A1044154A

PATIENT
  Sex: Female

DRUGS (3)
  1. BENLYSTA [Suspect]
     Indication: SYSTEMIC LUPUS ERYTHEMATOSUS
     Dates: start: 20130306
  2. IMURAN [Suspect]
  3. IMURAN [Concomitant]

REACTIONS (9)
  - Infusion related reaction [Unknown]
  - Paraesthesia [Unknown]
  - Confusional state [Unknown]
  - Headache [Unknown]
  - Nausea [Unknown]
  - Decreased appetite [Unknown]
  - Skin lesion [Unknown]
  - Skin papilloma [Unknown]
  - Skin lesion [Unknown]
